FAERS Safety Report 15524366 (Version 1)
Quarter: 2018Q4

REPORT INFORMATION
  Report Type: Spontaneous
  Country: ES (occurrence: ES)
  Receive Date: 20181018
  Receipt Date: 20181018
  Transmission Date: 20190205
  Serious: Yes (Hospitalization, Other)
  Sender: FDA-Public Use
  Company Number: ES-PURDUE-GBR-2018-0060566

PATIENT
  Sex: Female

DRUGS (8)
  1. DOPAMINE                           /00360702/ [Concomitant]
  2. VALIUM [Suspect]
     Active Substance: DIAZEPAM
     Indication: ANALGESIC THERAPY
     Dosage: UNK
     Route: 064
  3. METAMIZOLE MAGNESIUM W/PARGEVERINE HCL [Suspect]
     Active Substance: METAMIZOLE MAGNESIUM\PARGEVERINE HYDROCHLORIDE
     Dosage: UNK
     Route: 064
  4. DOBUTAMINE                         /00493402/ [Concomitant]
  5. FENTANYL                           /00174602/ [Concomitant]
     Active Substance: FENTANYL
  6. METAMIZOLE MAGNESIUM W/PARGEVERINE HCL [Suspect]
     Active Substance: METAMIZOLE MAGNESIUM\PARGEVERINE HYDROCHLORIDE
     Indication: PRODUCT USED FOR UNKNOWN INDICATION
     Dosage: UNK
     Route: 064
  7. AMITRIPTYLINE HYDROCHLORIDE W/PERPHENAZINE [Suspect]
     Active Substance: AMITRIPTYLINE HYDROCHLORIDE\PERPHENAZINE
     Indication: ANALGESIC THERAPY
     Dosage: UNK
     Route: 064
  8. MORPHINE SULFATE. [Suspect]
     Active Substance: MORPHINE SULFATE
     Indication: ANALGESIC THERAPY
     Dosage: UNK
     Route: 064

REACTIONS (9)
  - Hypermagnesaemia [Recovered/Resolved]
  - Decreased activity [Recovered/Resolved]
  - Electrocardiogram QT prolonged [Recovered/Resolved]
  - Bradycardia neonatal [Recovered/Resolved]
  - Lethargy [Recovered/Resolved]
  - Hypotonia neonatal [Recovered/Resolved]
  - Hyporeflexia [Recovered/Resolved]
  - Foetal exposure during pregnancy [Unknown]
  - Asthenia [Recovered/Resolved]
